FAERS Safety Report 18006372 (Version 1)
Quarter: 2020Q3

REPORT INFORMATION
  Report Type: Spontaneous
  Country: US (occurrence: US)
  Receive Date: 20200708
  Receipt Date: 20200708
  Transmission Date: 20201103
  Serious: No
  Sender: FDA-Public Use
  Company Number: None

PATIENT
  Age: 80 Year
  Sex: Male
  Weight: 83.25 kg

DRUGS (3)
  1. LOW DOSE 81% ASPIRIN [Concomitant]
  2. VITAMIN B12 [Concomitant]
     Active Substance: CYANOCOBALAMIN
  3. SPA ANALYTICS HYGIENIC HAND GEL (ETHYL ALCOHOL) [Suspect]
     Active Substance: ALCOHOL
     Indication: INFECTION PROPHYLAXIS
     Dates: start: 20200701, end: 20200705

REACTIONS (2)
  - Application site rash [None]
  - Product substitution issue [None]

NARRATIVE: CASE EVENT DATE: 20200701
